FAERS Safety Report 17389491 (Version 1)
Quarter: 2020Q1

REPORT INFORMATION
  Report Type: Spontaneous
  Country: ES (occurrence: ES)
  Receive Date: 20200207
  Receipt Date: 20200207
  Transmission Date: 20200409
  Serious: Yes (Hospitalization, Other)
  Sender: FDA-Public Use
  Company Number: ES-BAUSCH-BL-2020-003631

PATIENT
  Age: 81 Year
  Sex: Female

DRUGS (6)
  1. METFORMINA [Suspect]
     Active Substance: METFORMIN HYDROCHLORIDE
     Indication: TYPE 2 DIABETES MELLITUS
     Dosage: 50 TABLETS
     Route: 048
     Dates: start: 20180326, end: 20200118
  2. ATORVASTATINA [Concomitant]
     Active Substance: ATORVASTATIN
     Indication: TYPE IIA HYPERLIPIDAEMIA
     Dosage: 28 TABLETS
     Route: 048
     Dates: start: 20150817
  3. IRBESARTAN. [Concomitant]
     Active Substance: IRBESARTAN
     Indication: HYPERTENSION
     Dosage: 28 TABLETS
     Route: 048
     Dates: start: 20170722
  4. ESOMEPRAZOLE. [Concomitant]
     Active Substance: ESOMEPRAZOLE MAGNESIUM
     Indication: ORGANIC BRAIN SYNDROME
     Dosage: 56 CAPSULES
     Route: 048
     Dates: start: 20190523
  5. LANTUS SOLOSTAR [Concomitant]
     Active Substance: INSULIN GLARGINE
     Indication: TYPE 2 DIABETES MELLITUS
     Dosage: 100 UNITS/ML, INJECTABLE SOLUTION IN PRE-LOADED PEN, 5 PRE-FILLED PENS OF 3 ML
     Route: 058
     Dates: start: 20120328
  6. DONEPEZILO [Concomitant]
     Active Substance: DONEPEZIL
     Indication: ORGANIC BRAIN SYNDROME
     Dosage: 28 TABLETS
     Route: 048
     Dates: start: 20190522

REACTIONS (2)
  - Urinary tract infection [Recovered/Resolved]
  - Lactic acidosis [Recovered/Resolved]

NARRATIVE: CASE EVENT DATE: 20200118
